FAERS Safety Report 4935862-2 (Version None)
Quarter: 2006Q1

REPORT INFORMATION
  Report Type: 
  Country: None (occurrence: None)
  Receive Date: 20060302
  Receipt Date: 20060213
  Transmission Date: 20060701
  Serious: Yes (Death, Other)
  Sender: FDA-Public Use
  Company Number: US_0509122432

PATIENT
  Age: 11 Year
  Sex: Male

DRUGS (2)
  1. ZYPREXA [Suspect]
     Indication: INSOMNIA
     Dosage: SEE IMAGE
     Dates: start: 20010115, end: 20030201
  2. ZYPREXA [Suspect]
     Indication: INSOMNIA
     Dosage: SEE IMAGE
     Dates: start: 20001001

REACTIONS (15)
  - CONDITION AGGRAVATED [None]
  - CROHN'S DISEASE [None]
  - HYPERPHAGIA [None]
  - HYPERTENSION [None]
  - METABOLIC DISORDER [None]
  - MICROCYTIC ANAEMIA [None]
  - MYOCARDIAL INFARCTION [None]
  - NORMOCHROMIC NORMOCYTIC ANAEMIA [None]
  - POLYDIPSIA [None]
  - POLYURIA [None]
  - RETICULOCYTE COUNT INCREASED [None]
  - THROMBOSIS [None]
  - VISION BLURRED [None]
  - VITAMIN B12 INCREASED [None]
  - WEIGHT DECREASED [None]
